FAERS Safety Report 5650108-8 (Version None)
Quarter: 2008Q1

REPORT INFORMATION
  Report Type: 
  Country: None (occurrence: None)
  Receive Date: 20080304
  Receipt Date: 20080228
  Transmission Date: 20080703
  Serious: Yes (Hospitalization)
  Sender: FDA-Public Use
  Company Number: IT-ALLERGAN-0802516US

PATIENT
  Sex: Female

DRUGS (1)
  1. VISTABEX [Suspect]
     Indication: SKIN WRINKLING
     Dosage: 4 UNITS, SINGLE
     Route: 030
     Dates: start: 20071120, end: 20071120

REACTIONS (2)
  - ANGIOEDEMA [None]
  - FACE OEDEMA [None]
